FAERS Safety Report 16564405 (Version 1)
Quarter: 2019Q3

REPORT INFORMATION
  Report Type: Spontaneous
  Country: US (occurrence: US)
  Receive Date: 20190530
  Receipt Date: 20190530
  Transmission Date: 20191004
  Serious: No
  Sender: FDA-Public Use
  Company Number: None

PATIENT
  Age: 77 Year
  Sex: Male

DRUGS (1)
  1. AMIKACIN. [Suspect]
     Active Substance: AMIKACIN
     Dosage: ?          OTHER DOSE:8.4 ML;?
     Route: 055
     Dates: start: 20190206, end: 20190408

REACTIONS (4)
  - Wheezing [None]
  - Dyspnoea [None]
  - Bronchospasm [None]
  - Cough [None]

NARRATIVE: CASE EVENT DATE: 20190404
